FAERS Safety Report 9230111 (Version 2)
Quarter: 2013Q4

REPORT INFORMATION
  Report Type: Spontaneous
  Country: US (occurrence: US)
  Receive Date: 20130415
  Receipt Date: 20131223
  Transmission Date: 20140711
  Serious: Yes (Hospitalization)
  Sender: FDA-Public Use
  Company Number: US-BAYER-2013-045375

PATIENT
  Age: 16 Year
  Sex: Female
  Weight: 63 kg

DRUGS (8)
  1. OCELLA [Suspect]
     Dosage: UNK
     Dates: start: 2009, end: 2010
  2. TOPAMAX [Concomitant]
  3. LEXAPRO [Concomitant]
  4. FOLIC ACID [Concomitant]
     Dosage: 1 MG, DAILY
  5. SENNA [Concomitant]
     Dosage: 1 TWICE DAILY
  6. ZOLOFT [Concomitant]
     Dosage: DAILY
  7. OXYCONTIN [Concomitant]
     Dosage: 10 MG, BID
  8. COLACE [Concomitant]
     Dosage: 100 MG, BID

REACTIONS (9)
  - Deep vein thrombosis [None]
  - Thrombosis [None]
  - Abdominal pain [None]
  - Injury [None]
  - Pain [None]
  - General physical health deterioration [None]
  - Anxiety [None]
  - Emotional distress [None]
  - Pain [None]
